FAERS Safety Report 14255116 (Version 1)
Quarter: 2017Q4

REPORT INFORMATION
  Report Type: Spontaneous
  Country: US (occurrence: US)
  Receive Date: 20171206
  Receipt Date: 20171206
  Transmission Date: 20180321
  Serious: No
  Sender: FDA-Public Use
  Company Number: US-GLAXOSMITHKLINE-US2017GSK186740

PATIENT
  Age: 30 Year
  Sex: Male

DRUGS (1)
  1. VENTOLIN [Suspect]
     Active Substance: ALBUTEROL SULFATE
     Indication: ASTHMA
     Dosage: UNK UG, UNK
     Route: 055
     Dates: start: 1997

REACTIONS (2)
  - Intentional overdose [Unknown]
  - Wheezing [Unknown]

NARRATIVE: CASE EVENT DATE: 201711
